FAERS Safety Report 8278870-9 (Version None)
Quarter: 2012Q2

REPORT INFORMATION
  Report Type: 
  Country: None (occurrence: None)
  Receive Date: 20120412
  Receipt Date: 20120203
  Transmission Date: 20120825
  Serious: No
  Sender: FDA-Public Use
  Company Number: US-ASTRAZENECA-2010SE59685

PATIENT
  Age: 60 Year
  Sex: Male

DRUGS (1)
  1. NEXIUM [Suspect]
     Route: 048

REACTIONS (7)
  - BACK PAIN [None]
  - PELVIC PAIN [None]
  - ADVERSE REACTION [None]
  - NAUSEA [None]
  - INCORRECT DOSE ADMINISTERED [None]
  - STRESS [None]
  - IRON DEFICIENCY ANAEMIA [None]
